FAERS Safety Report 10390984 (Version 1)
Quarter: 2014Q3

REPORT INFORMATION
  Report Type: Spontaneous
  Country: US (occurrence: US)
  Receive Date: 20140818
  Receipt Date: 20140818
  Transmission Date: 20150326
  Serious: Yes (Other)
  Sender: FDA-Public Use
  Company Number: US-PFIZER INC-2014226488

PATIENT
  Age: 53 Year
  Sex: Female
  Weight: 50.79 kg

DRUGS (5)
  1. GABAPENTIN. [Suspect]
     Active Substance: GABAPENTIN
     Dosage: 300MG TWO CAPSULES ONCE A DAY FOR A WEEK
     Dates: start: 201406
  2. GABAPENTIN. [Suspect]
     Active Substance: GABAPENTIN
     Dosage: 300MG THREE CAPSULES ONCE A DAY FOR A WEEK
     Dates: start: 201406, end: 201406
  3. GRALISE [Suspect]
     Active Substance: GABAPENTIN
     Indication: NEURALGIA
     Dosage: UNK
     Dates: start: 2014, end: 2014
  4. FLEXERIL [Concomitant]
     Active Substance: CYCLOBENZAPRINE HYDROCHLORIDE
     Dosage: 5 MG, 1X/DAY
  5. GABAPENTIN. [Suspect]
     Active Substance: GABAPENTIN
     Indication: NEURALGIA
     Dosage: 300 MG, 1X/DAY (FOR WEEK)
     Route: 048
     Dates: start: 20140601

REACTIONS (9)
  - Somnolence [Unknown]
  - Dry throat [Unknown]
  - Feeling abnormal [Unknown]
  - Activities of daily living impaired [Unknown]
  - Sensation of foreign body [Unknown]
  - Mental disorder [Unknown]
  - Insomnia [Unknown]
  - Pharyngeal oedema [Unknown]
  - Depressed level of consciousness [Unknown]

NARRATIVE: CASE EVENT DATE: 201406
